FAERS Safety Report 7929556-9 (Version None)
Quarter: 2011Q4

REPORT INFORMATION
  Report Type: 
  Country: None (occurrence: None)
  Receive Date: 20111108
  Receipt Date: 20101220
  Transmission Date: 20120403
  Serious: Yes (Hospitalization)
  Sender: FDA-Public Use
  Company Number: AUR-APL-2009-00588

PATIENT
  Age: 78 Year
  Sex: Female
  Weight: 74 kg

DRUGS (18)
  1. LASIX [Concomitant]
  2. WARFARIN SODIUM [Concomitant]
  3. SYNTHROID [Concomitant]
  4. THEOPHYLLINE [Concomitant]
  5. METOPROLOL TARTRATE [Concomitant]
  6. FISH OIL [Concomitant]
  7. VICODIN [Concomitant]
  8. FERROUS SULFATE TAB [Concomitant]
  9. ARICEPT [Concomitant]
  10. NORVASC [Concomitant]
  11. PREVACID [Concomitant]
  12. EXEMESTANE [Suspect]
     Indication: BREAST CANCER
     Dosage: 25MG - DAILY - ORAL
     Route: 048
     Dates: start: 20080612
  13. LIPITOR [Concomitant]
  14. SEPTRA [Concomitant]
  15. VASOTEC [Concomitant]
  16. HYDROCHLOROTHIAZIDE [Suspect]
     Indication: PRODUCT USED FOR UNKNOWN INDICATION
     Dosage: ORAL
     Route: 048
     Dates: end: 20090116
  17. CALCIUM WITH VITAMIN D [Concomitant]
  18. NIASPAN [Concomitant]

REACTIONS (1)
  - HYPONATRAEMIA [None]
